FAERS Safety Report 11992305 (Version 1)
Quarter: 2016Q1

REPORT INFORMATION
  Report Type: Spontaneous
  Country: US (occurrence: US)
  Receive Date: 20160203
  Receipt Date: 20160203
  Transmission Date: 20160526
  Serious: No
  Sender: FDA-Public Use
  Company Number: US-JNJFOC-20160104729

PATIENT
  Age: 56 Year
  Sex: Female

DRUGS (1)
  1. TYLENOL SORE THROAT [Suspect]
     Active Substance: ACETAMINOPHEN
     Indication: OROPHARYNGEAL PAIN
     Dosage: 2 TEASPOONS, 2 TIMES PER DAY
     Route: 048
     Dates: start: 2015

REACTIONS (2)
  - Expired product administered [Unknown]
  - Therapeutic response decreased [Unknown]

NARRATIVE: CASE EVENT DATE: 2015
